FAERS Safety Report 21247467 (Version 1)
Quarter: 2022Q3

REPORT INFORMATION
  Report Type: Spontaneous
  Country: DE (occurrence: DE)
  Receive Date: 20220824
  Receipt Date: 20220824
  Transmission Date: 20221027
  Serious: Yes (Hospitalization, Other)
  Sender: FDA-Public Use
  Company Number: DE-ASTELLAS-2022US029663

PATIENT
  Age: 80 Year
  Sex: Male

DRUGS (1)
  1. PADCEV [Suspect]
     Active Substance: ENFORTUMAB VEDOTIN-EJFV
     Indication: Transitional cell carcinoma
     Dosage: UNK UNK, UNKNOWN FREQ.
     Route: 065
     Dates: start: 202206

REACTIONS (9)
  - General physical health deterioration [Unknown]
  - Condition aggravated [Unknown]
  - Mobility decreased [Unknown]
  - Condition aggravated [Unknown]
  - Delirium [Unknown]
  - Condition aggravated [Unknown]
  - Myopathy [Unknown]
  - Cognitive disorder [Unknown]
  - Transaminases increased [Unknown]
